FAERS Safety Report 8555814-3 (Version None)
Quarter: 2012Q3

REPORT INFORMATION
  Report Type: 
  Country: None (occurrence: None)
  Receive Date: 20120801
  Receipt Date: 20120724
  Transmission Date: 20120928
  Serious: No
  Sender: FDA-Public Use
  Company Number: US-BIOGENIDEC-2012BI025781

PATIENT
  Age: 52 Year
  Sex: Female

DRUGS (3)
  1. MEDICATION (NOS) [Concomitant]
     Indication: FATIGUE
  2. GOODY'S POWDER [Concomitant]
     Indication: HEADACHE
  3. TYSABRI [Suspect]
     Indication: MULTIPLE SCLEROSIS
     Route: 042
     Dates: start: 20120417

REACTIONS (6)
  - MUSCLE SPASMS [None]
  - ALOPECIA [None]
  - HAIR TEXTURE ABNORMAL [None]
  - PRURITUS [None]
  - DRY SKIN [None]
  - HEADACHE [None]
